FAERS Safety Report 24768129 (Version 1)
Quarter: 2024Q4

REPORT INFORMATION
  Report Type: Spontaneous
  Country: FR (occurrence: FR)
  Receive Date: 20241223
  Receipt Date: 20241223
  Transmission Date: 20250115
  Serious: Yes (Other)
  Sender: PFIZER
  Company Number: FR-PFIZER INC-202101638170

PATIENT
  Age: 59 Year
  Sex: Male

DRUGS (4)
  1. RIFABUTIN [Interacting]
     Active Substance: RIFABUTIN
     Dosage: 150 MG, 1X/DAY
  2. POSACONAZOLE [Interacting]
     Active Substance: POSACONAZOLE
     Indication: Mycetoma mycotic
     Dosage: 300 MILLIGRAM EVERY 12 HOUR(S) ; 300 MILLIGRAM EVERY 1 DAY(S) ; 200 MILLIGRAM EVERY 1 DAY(S)
  3. TENOFOVIR [Concomitant]
     Active Substance: TENOFOVIR
     Indication: Hepatitis B
     Dosage: UNK
  4. ISONIAZID [Concomitant]
     Active Substance: ISONIAZID
     Indication: Bone tuberculosis
     Dosage: UNK

REACTIONS (3)
  - Hepatic enzyme increased [Recovered/Resolved]
  - Neutropenia [Recovered/Resolved]
  - Drug interaction [Recovered/Resolved]
